FAERS Safety Report 8311287 (Version 4)
Quarter: 2013Q3

REPORT INFORMATION
  Report Type: Report from Study
  Country: JP (occurrence: JP)
  Receive Date: 20111227
  Receipt Date: 20130911
  Transmission Date: 20140515
  Serious: Yes (Hospitalization)
  Sender: FDA-Public Use
  Company Number: JP-BRISTOL-MYERS SQUIBB COMPANY-16311953

PATIENT
  Age: 50 Year
  Sex: Male
  Weight: 93 kg

DRUGS (8)
  1. ABILIFY TABS [Suspect]
     Indication: SCHIZOPHRENIA
     Dosage: INCREASED FROM 9MG TO 12MG
     Route: 048
     Dates: start: 20111207, end: 20111214
  2. SERENACE [Suspect]
     Indication: HALLUCINATION, AUDITORY
     Dosage: ALSO 2 MG
     Route: 048
     Dates: start: 20111214, end: 20111216
  3. SERENACE [Suspect]
     Indication: HALLUCINATION
     Dosage: ALSO 2 MG
     Route: 048
     Dates: start: 20111214, end: 20111216
  4. BROTIZOLAM [Suspect]
     Indication: INSOMNIA
     Dosage: 06-11DEC11.14-15DEC11.
     Route: 048
     Dates: start: 20111206, end: 20111215
  5. TRIHEXYPHENIDYL [Suspect]
     Indication: HALLUCINATION, AUDITORY
     Route: 048
     Dates: start: 20111214, end: 20111216
  6. TRIHEXYPHENIDYL [Suspect]
     Indication: HALLUCINATION
     Route: 048
     Dates: start: 20111214, end: 20111216
  7. EVAMYL [Concomitant]
     Dates: start: 20111212
  8. ESTAZOLAM [Concomitant]
     Dates: end: 20111205

REACTIONS (2)
  - Hallucination [Recovered/Resolved]
  - Insomnia [Recovered/Resolved]
